FAERS Safety Report 8580459-9 (Version None)
Quarter: 2012Q3

REPORT INFORMATION
  Report Type: 
  Country: None (occurrence: None)
  Receive Date: 20120808
  Receipt Date: 20120802
  Transmission Date: 20120928
  Serious: Yes (Life-Threatening, Other)
  Sender: FDA-Public Use
  Company Number: BR-ROCHE-765209

PATIENT
  Sex: Female
  Weight: 49 kg

DRUGS (22)
  1. ACTEMRA [Suspect]
     Indication: RHEUMATOID ARTHRITIS
     Dosage: DOSE:UNKNOWN, ROUTE :ENDOVENOUS
     Route: 042
     Dates: start: 20090626
  2. ACTEMRA [Suspect]
     Route: 042
     Dates: start: 20091001
  3. CALCIUM/VITAMIN D [Concomitant]
     Dosage: DOSE: 50 MG (UNSP), ROUTE, FREQUENCY: NOT INFORMED.
  4. CAPTOPRIL [Concomitant]
  5. ACTEMRA [Suspect]
     Route: 042
     Dates: start: 20090601
  6. CLONAZEPAM [Concomitant]
  7. ACTEMRA [Suspect]
     Route: 042
     Dates: start: 20090901
  8. ACTEMRA [Suspect]
     Route: 042
     Dates: start: 20091201
  9. ACTEMRA [Suspect]
     Route: 042
     Dates: start: 20090501
  10. CITONEURIN [Concomitant]
  11. FOLIC ACID [Concomitant]
  12. ACTEMRA [Suspect]
     Route: 042
     Dates: start: 20091101
  13. ACTEMRA [Suspect]
     Route: 042
     Dates: start: 20090828
  14. AMLODIPINE BESYLATE [Concomitant]
     Dosage: DRUG: TENSALIV,  ROUTE: NOT INFORMED.DOSE: 5 MG
  15. ASCORBIC ACID [Concomitant]
  16. ACTEMRA [Suspect]
     Route: 042
     Dates: start: 20090629
  17. ACTEMRA [Suspect]
     Route: 042
     Dates: start: 20090101
  18. ACTEMRA [Suspect]
     Route: 042
     Dates: start: 20090201
  19. ACTEMRA [Suspect]
     Route: 042
     Dates: start: 20090301
  20. DIPYRONE INJ [Concomitant]
     Indication: PAIN
     Dosage: FREQUENCY: AS NEEDED.
  21. PREDNISOLONE [Concomitant]
     Dosage: FREQUENCY NOT REPORTED
  22. ACTEMRA [Suspect]
     Route: 042
     Dates: start: 20090401

REACTIONS (11)
  - ANAEMIA [None]
  - ARTHRITIS [None]
  - INFLUENZA [None]
  - HYPOVITAMINOSIS [None]
  - IMMUNODEFICIENCY [None]
  - CATARACT [None]
  - NASOPHARYNGITIS [None]
  - PLATELET COUNT DECREASED [None]
  - WEIGHT DECREASED [None]
  - CONTUSION [None]
  - DENTAL CARIES [None]
